FAERS Safety Report 9359285 (Version 2)
Quarter: 2013Q3

REPORT INFORMATION
  Report Type: Spontaneous
  Country: US (occurrence: US)
  Receive Date: 20130620
  Receipt Date: 20130806
  Transmission Date: 20140515
  Serious: No
  Sender: FDA-Public Use
  Company Number: US-PFIZER INC-2013185579

PATIENT
  Age: 56 Year
  Sex: Male
  Weight: 88.44 kg

DRUGS (1)
  1. GABAPENTIN [Suspect]
     Indication: PAIN
     Dosage: UNK
     Dates: start: 2011

REACTIONS (1)
  - Sexual dysfunction [Unknown]
